FAERS Safety Report 9119259 (Version 1)
Quarter: 2013Q1

REPORT INFORMATION
  Report Type: Spontaneous
  Country: US (occurrence: US)
  Receive Date: 20130104
  Receipt Date: 20130104
  Transmission Date: 20140127
  Serious: No
  Sender: FDA-Public Use
  Company Number: US-TARO-2012P1012505

PATIENT
  Age: 74 Year
  Sex: Male
  Weight: 81.63 kg

DRUGS (7)
  1. MOMETASONE FUROATE [Suspect]
     Indication: PSORIASIS
     Route: 061
     Dates: start: 2009
  2. MOMETASONE FUROATE [Suspect]
     Indication: RASH
     Route: 061
     Dates: start: 2009
  3. MOMETASONE FUROATE [Suspect]
     Indication: PRURITUS
     Route: 061
     Dates: start: 2009
  4. METHYLPRED [Concomitant]
     Dates: start: 2009
  5. LIPITOR [Concomitant]
  6. METOPROLOL [Concomitant]
  7. ECOTRIN [Concomitant]

REACTIONS (1)
  - Drug effect decreased [Not Recovered/Not Resolved]
